FAERS Safety Report 10142652 (Version 1)
Quarter: 2014Q2

REPORT INFORMATION
  Report Type: Spontaneous
  Country: GB (occurrence: None)
  Receive Date: 20140425
  Receipt Date: 20140425
  Transmission Date: 20141212
  Serious: Yes (Other)
  Sender: FDA-Public Use
  Company Number: FK201401448

PATIENT
  Age: 18 Year
  Sex: Female

DRUGS (9)
  1. ONDANSETRON (MANUFACTURER UNKNOWN) (ONDANSETRON) (ONDANSETRON) [Suspect]
     Indication: VOMITING
     Route: 042
     Dates: start: 20120404, end: 20140404
  2. AZATHIOPRIN (AZATHIOPRINE) [Concomitant]
  3. DEXAMETHASONE (DEXAMETHASONE ) [Concomitant]
  4. FENTANYL (FENTANYL) [Concomitant]
  5. INFLIXIMAB (INFLIXIMAB) [Concomitant]
  6. NEOSTIGMINE (NEOSTIGMINE) [Concomitant]
  7. OMEPRAZOLE (OMEPRAZOLE) [Concomitant]
  8. PROPOFOL (PROPOFOL) [Concomitant]
  9. ROCURONIUM (ROCURONIUM) [Concomitant]

REACTIONS (3)
  - Loss of consciousness [None]
  - Dystonia [None]
  - Oculogyric crisis [None]
